FAERS Safety Report 8066683 (Version 2)
Quarter: 2012Q4

REPORT INFORMATION
  Report Type: 
  Country: GB (occurrence: GB)
  Receive Date: 20110803
  Receipt Date: 20120912
  Transmission Date: 20130627
  Serious: Yes (Death, Other)
  Sender: FDA-Public Use
  Company Number: GB-RANBAXY-2011R1-46548

PATIENT
  Age: 16 Year
  Sex: Male

DRUGS (1)
  1. DOXYCYCLINE HYDROCHLORIDE [Suspect]
     Indication: PANNICULITIS
     Dosage: 100 mg, bid
     Route: 065

REACTIONS (1)
  - Hepatic function abnormal [Unknown]
